FAERS Safety Report 8047603-3 (Version None)
Quarter: 2012Q1

REPORT INFORMATION
  Report Type: 
  Country: None (occurrence: None)
  Receive Date: 20120116
  Receipt Date: 20110310
  Transmission Date: 20120608
  Serious: Yes (Other)
  Sender: FDA-Public Use
  Company Number: US-GLAXOSMITHKLINE-B0705634A

PATIENT
  Sex: Female
  Weight: 111.8 kg

DRUGS (16)
  1. SYNTHROID [Concomitant]
  2. ALBUTEROL [Concomitant]
  3. ALTACE [Concomitant]
  4. AVANDARYL [Suspect]
     Indication: DIABETES MELLITUS
     Route: 048
     Dates: end: 20110310
  5. LISINOPRIL [Concomitant]
  6. METOPROLOL TARTRATE [Concomitant]
  7. METFORMIN HCL [Concomitant]
  8. LASIX [Concomitant]
  9. RANITIDINE [Concomitant]
  10. GLUCOPHAGE [Concomitant]
  11. PRAVASTATIN [Concomitant]
  12. ASPIRIN [Concomitant]
  13. KLOR-CON [Concomitant]
  14. AVANDIA [Suspect]
     Indication: DIABETES MELLITUS
     Dosage: 4MG TWICE PER DAY
     Route: 048
     Dates: start: 20040201, end: 20091010
  15. MICARDIS [Concomitant]
  16. CLONIDINE [Concomitant]

REACTIONS (2)
  - CARDIOVASCULAR DISORDER [None]
  - CARDIAC FAILURE CONGESTIVE [None]
